FAERS Safety Report 25749948 (Version 1)
Quarter: 2025Q3

REPORT INFORMATION
  Report Type: Spontaneous
  Country: CN (occurrence: CN)
  Receive Date: 20250902
  Receipt Date: 20250902
  Transmission Date: 20251021
  Serious: Yes (Hospitalization)
  Sender: MYLAN
  Company Number: CN-MYLANLABS-2025M1073804

PATIENT
  Age: 67 Year
  Sex: Female
  Weight: 55 kg

DRUGS (4)
  1. LIPITOR [Suspect]
     Active Substance: ATORVASTATIN CALCIUM
     Indication: Hyperlipidaemia
     Dosage: 20 MILLIGRAM, QD
     Dates: start: 20250314, end: 20250808
  2. LIPITOR [Suspect]
     Active Substance: ATORVASTATIN CALCIUM
     Dosage: 20 MILLIGRAM, QD
     Route: 048
     Dates: start: 20250314, end: 20250808
  3. LIPITOR [Suspect]
     Active Substance: ATORVASTATIN CALCIUM
     Dosage: 20 MILLIGRAM, QD
     Route: 048
     Dates: start: 20250314, end: 20250808
  4. LIPITOR [Suspect]
     Active Substance: ATORVASTATIN CALCIUM
     Dosage: 20 MILLIGRAM, QD
     Dates: start: 20250314, end: 20250808

REACTIONS (7)
  - C-reactive protein increased [Recovered/Resolved]
  - Procalcitonin increased [Recovered/Resolved]
  - Blood bilirubin increased [Recovered/Resolved]
  - Bilirubin conjugated increased [Recovered/Resolved]
  - Blood bilirubin unconjugated increased [Recovered/Resolved]
  - Pyrexia [Recovered/Resolved]
  - Hepatic function abnormal [Recovered/Resolved]

NARRATIVE: CASE EVENT DATE: 20250804
